FAERS Safety Report 6295423-2 (Version None)
Quarter: 2009Q3

REPORT INFORMATION
  Report Type: 
  Country: None (occurrence: None)
  Receive Date: 20090803
  Receipt Date: 20090722
  Transmission Date: 20100115
  Serious: Yes (Other)
  Sender: FDA-Public Use
  Company Number: PHHY2009JP30645

PATIENT
  Age: 71 Year
  Sex: Female

DRUGS (4)
  1. CARBAMAZEPINE [Suspect]
     Dosage: UNK
  2. CLONAZEPAM [Suspect]
  3. ASPIRIN [Suspect]
  4. LOXOPROFEN [Suspect]
     Dosage: UNK

REACTIONS (2)
  - APATHY [None]
  - HEADACHE [None]
